FAERS Safety Report 8012181-1 (Version None)
Quarter: 2011Q4

REPORT INFORMATION
  Report Type: 
  Country: None (occurrence: None)
  Receive Date: 20111228
  Receipt Date: 20111221
  Transmission Date: 20120403
  Serious: Yes (Hospitalization, Other)
  Sender: FDA-Public Use
  Company Number: US-PFIZER INC-HQWYE366926FEB04

PATIENT
  Sex: Female
  Weight: 56.7 kg

DRUGS (10)
  1. ACETAMINOPHEN [Suspect]
     Dosage: 8 DF, 1X/DAY
     Route: 048
  2. EFFEXOR XR [Suspect]
     Indication: MOOD SWINGS
  3. AUGMENTIN [Concomitant]
     Dosage: UNK
  4. EFFEXOR XR [Suspect]
     Indication: DEPRESSION
     Dosage: 75 MG, 1X/DAY
     Route: 048
     Dates: start: 20030610, end: 20030806
  5. NAPROXEN [Suspect]
     Dosage: UNK
     Dates: end: 20030805
  6. EFFEXOR XR [Suspect]
     Indication: MIGRAINE
     Dosage: 150 MG, EVERY MORNING WITH FOOD
     Route: 048
     Dates: start: 20030807, end: 20030923
  7. CIMETIDINE [Suspect]
     Dosage: UNK
  8. DARVOCET-N 50 [Concomitant]
     Dosage: UNK
  9. VALTREX [Concomitant]
     Dosage: UNK
  10. KETOPROFEN [Suspect]
     Indication: HEADACHE
     Dosage: UNK
     Route: 048
     Dates: end: 20030805

REACTIONS (18)
  - WEIGHT DECREASED [None]
  - RESTLESSNESS [None]
  - INSOMNIA [None]
  - ANGER [None]
  - ABNORMAL BEHAVIOUR [None]
  - INTENTIONAL OVERDOSE [None]
  - EMOTIONAL DISORDER [None]
  - IRRITABILITY [None]
  - SUICIDE ATTEMPT [None]
  - EUPHORIC MOOD [None]
  - SUICIDAL IDEATION [None]
  - DRUG INEFFECTIVE [None]
  - AGITATION [None]
  - IMPULSIVE BEHAVIOUR [None]
  - VOMITING [None]
  - HOSTILITY [None]
  - NAUSEA [None]
  - AGGRESSION [None]
